FAERS Safety Report 20997575 (Version 1)
Quarter: 2022Q2

REPORT INFORMATION
  Report Type: Other
  Country: ES (occurrence: ES)
  Receive Date: 20220623
  Receipt Date: 20220623
  Transmission Date: 20220720
  Serious: Yes (Other)
  Sender: FDA-Public Use
  Company Number: ES-002147023-NVSC2022ES133789

PATIENT

DRUGS (1)
  1. RITUXIMAB [Suspect]
     Active Substance: RITUXIMAB
     Indication: Systemic lupus erythematosus
     Route: 065

REACTIONS (2)
  - Hypogammaglobulinaemia [Unknown]
  - Off label use [Unknown]
